FAERS Safety Report 5759373-X (Version None)
Quarter: 2008Q2

REPORT INFORMATION
  Report Type: 
  Country: None (occurrence: None)
  Receive Date: 20080605
  Receipt Date: 20080527
  Transmission Date: 20081010
  Serious: Yes (Other)
  Sender: FDA-Public Use
  Company Number: ES-JNJFOC-20080505987

PATIENT
  Sex: Male

DRUGS (3)
  1. REMICADE [Suspect]
     Indication: COLITIS ULCERATIVE
     Dosage: TOTAL # OF DOSES: 3
     Route: 042
  2. AZATHIOPRINE [Concomitant]
     Dosage: DURATION: 2 YEARS
  3. CORTICOIDS [Concomitant]
     Indication: PROPHYLAXIS
     Dosage: DESCENDING DOSES

REACTIONS (1)
  - ASPERGILLOSIS [None]
